FAERS Safety Report 7421944-2 (Version None)
Quarter: 2011Q2

REPORT INFORMATION
  Report Type: 
  Country: None (occurrence: None)
  Receive Date: 20110418
  Receipt Date: 20110412
  Transmission Date: 20111010
  Serious: Yes (Other)
  Sender: FDA-Public Use
  Company Number: US-ELI_LILLY_AND_COMPANY-US201104003746

PATIENT
  Sex: Female

DRUGS (5)
  1. HUMALOG [Suspect]
     Dosage: 20 U, OTHER
     Dates: start: 20110411
  2. LANTUS [Concomitant]
     Dosage: 100 U, QD
  3. HUMALOG [Suspect]
     Dosage: UNK, OTHER
  4. HUMALOG [Suspect]
     Dosage: UNK, OTHER
  5. HUMALOG [Suspect]
     Indication: DIABETES MELLITUS
     Dosage: 20 U, OTHER

REACTIONS (4)
  - BLOOD GLUCOSE INCREASED [None]
  - MUSCULOSKELETAL DISORDER [None]
  - INCORRECT DOSE ADMINISTERED [None]
  - LIMB OPERATION [None]
